FAERS Safety Report 4359902-7 (Version None)
Quarter: 2004Q2

REPORT INFORMATION
  Report Type: 
  Country: None (occurrence: None)
  Receive Date: 20040518
  Receipt Date: 20040430
  Transmission Date: 20050107
  Serious: Yes (Other)
  Sender: FDA-Public Use
  Company Number: US-BRISTOL-MYERS SQUIBB COMPANY-12580767

PATIENT
  Age: 5 Decade
  Sex: Female

DRUGS (1)
  1. TEQUIN [Suspect]

REACTIONS (2)
  - BLINDNESS [None]
  - SYNCOPE [None]
